FAERS Safety Report 18271603 (Version 1)
Quarter: 2020Q3

REPORT INFORMATION
  Report Type: Spontaneous
  Country: CN (occurrence: CN)
  Receive Date: 20200916
  Receipt Date: 20200916
  Transmission Date: 20201103
  Serious: Yes (Other)
  Sender: FDA-Public Use
  Company Number: CN-ROCHE-2676874

PATIENT
  Age: 80 Year
  Sex: Female

DRUGS (1)
  1. LUCENTIS [Suspect]
     Active Substance: RANIBIZUMAB
     Indication: RETINAL VEIN OCCLUSION
     Dosage: 0.05 ML, QMO
     Route: 065
     Dates: start: 20200821

REACTIONS (2)
  - Visual impairment [Unknown]
  - Retinal artery occlusion [Unknown]

NARRATIVE: CASE EVENT DATE: 20200904
